FAERS Safety Report 9802447 (Version 1)
Quarter: 2014Q1

REPORT INFORMATION
  Report Type: Spontaneous
  Country: US (occurrence: US)
  Receive Date: 20140107
  Receipt Date: 20140107
  Transmission Date: 20141002
  Serious: No
  Sender: FDA-Public Use
  Company Number: US-GILEAD-2013-0090813

PATIENT
  Sex: Female

DRUGS (2)
  1. LETAIRIS [Suspect]
     Indication: COR PULMONALE CHRONIC
     Dosage: 10 MG, QD
     Route: 065
  2. REVATIO [Suspect]
     Indication: PRODUCT USED FOR UNKNOWN INDICATION
     Dosage: 20 MG, TID
     Route: 065
     Dates: start: 20110601

REACTIONS (2)
  - Tremor [Not Recovered/Not Resolved]
  - Muscle spasms [Not Recovered/Not Resolved]
